FAERS Safety Report 5840915-0 (Version None)
Quarter: 2008Q3

REPORT INFORMATION
  Report Type: 
  Country: None (occurrence: None)
  Receive Date: 20080811
  Receipt Date: 20080730
  Transmission Date: 20090109
  Serious: Yes (Hospitalization)
  Sender: FDA-Public Use
  Company Number: GB-PFIZER INC-2008063910

PATIENT
  Sex: Female
  Weight: 86 kg

DRUGS (2)
  1. EPIRUBICIN HYDROCHLORIDE [Suspect]
     Indication: BREAST CANCER
  2. NEULASTA [Suspect]
     Indication: BREAST CANCER

REACTIONS (1)
  - ACUTE CORONARY SYNDROME [None]
